FAERS Safety Report 16076695 (Version 1)
Quarter: 2019Q1

REPORT INFORMATION
  Report Type: Spontaneous
  Country: CA (occurrence: CA)
  Receive Date: 20190315
  Receipt Date: 20190315
  Transmission Date: 20190418
  Serious: Yes (Hospitalization)
  Sender: FDA-Public Use
  Company Number: CA-AUROBINDO-AUR-APL-2013-08061

PATIENT

DRUGS (6)
  1. GABAPENTIN. [Suspect]
     Active Substance: GABAPENTIN
     Indication: NEURALGIA
     Dosage: 600 MILLIGRAM
     Route: 065
  2. SERTRALINE [Concomitant]
     Active Substance: SERTRALINE HYDROCHLORIDE
     Indication: DEPRESSION
     Dosage: 300 MILLIGRAM, DAILY
     Route: 065
  3. LORAZEPAM. [Suspect]
     Active Substance: LORAZEPAM
     Dosage: 1 MILLIGRAM, DAILY
     Route: 065
  4. GABAPENTIN. [Suspect]
     Active Substance: GABAPENTIN
     Dosage: 400 MILLIGRAM
  5. LORAZEPAM. [Suspect]
     Active Substance: LORAZEPAM
     Indication: DEPRESSION
     Dosage: 3 MILLIGRAM, DAILY
     Route: 065
  6. GABAPENTIN. [Suspect]
     Active Substance: GABAPENTIN
     Indication: FIBROMYALGIA
     Dosage: 1800 MILLIGRAM, DAILY
     Route: 065

REACTIONS (14)
  - Insomnia [Recovered/Resolved]
  - Agitation [Recovered/Resolved]
  - Hyperhidrosis [Recovered/Resolved]
  - Hepatic enzyme increased [Recovered/Resolved]
  - Anxiety [Recovered/Resolved]
  - Cold sweat [Recovered/Resolved]
  - Hypokalaemia [Recovered/Resolved]
  - Abdominal pain [Recovered/Resolved]
  - Drug withdrawal syndrome [Recovered/Resolved]
  - Nausea [Recovered/Resolved]
  - Fall [Recovered/Resolved]
  - Chills [Recovered/Resolved]
  - Decreased appetite [Recovered/Resolved]
  - Headache [Recovered/Resolved]
